FAERS Safety Report 14097423 (Version 1)
Quarter: 2017Q4

REPORT INFORMATION
  Report Type: Spontaneous
  Country: US (occurrence: US)
  Receive Date: 20171017
  Receipt Date: 20171017
  Transmission Date: 20180321
  Serious: Yes (Disabling)
  Sender: FDA-Public Use
  Company Number: None

PATIENT
  Age: 48 Year
  Sex: Female
  Weight: 72 kg

DRUGS (9)
  1. VITAMIN B12 [Concomitant]
     Active Substance: CYANOCOBALAMIN
  2. PROBIOTICS [Concomitant]
     Active Substance: PROBIOTICS NOS
  3. FISH OIL [Concomitant]
     Active Substance: FISH OIL
  4. ADDERALL [Concomitant]
     Active Substance: AMPHETAMINE ASPARTATE\AMPHETAMINE SULFATE\DEXTROAMPHETAMINE SACCHARATE\DEXTROAMPHETAMINE SULFATE
  5. MULTI VITAMIN [Concomitant]
     Active Substance: VITAMINS
  6. MAGNESIUM MALTATE [Concomitant]
  7. VITAMIN D [Concomitant]
     Active Substance: CHOLECALCIFEROL
  8. BUPROPION SR [Suspect]
     Active Substance: BUPROPION HYDROCHLORIDE
     Indication: DEPRESSION
     Dosage: ?          QUANTITY:1 TABLET(S);?
     Route: 048
  9. WELLBUTRIN SR [Concomitant]
     Active Substance: BUPROPION HYDROCHLORIDE

REACTIONS (9)
  - Pain [None]
  - Product substitution issue [None]
  - Nausea [None]
  - Drug ineffective [None]
  - Headache [None]
  - Depression [None]
  - Suicidal ideation [None]
  - Weight increased [None]
  - Mental impairment [None]

NARRATIVE: CASE EVENT DATE: 20171002
